FAERS Safety Report 19761772 (Version 5)
Quarter: 2022Q1

REPORT INFORMATION
  Report Type: Report from Study
  Country: US (occurrence: US)
  Receive Date: 20210830
  Receipt Date: 20220210
  Transmission Date: 20220423
  Serious: Yes (Hospitalization)
  Sender: FDA-Public Use
  Company Number: US-NOVARTISPH-NVSC2021US055185

PATIENT
  Age: 53 Year
  Sex: Female
  Weight: 81.633 kg

DRUGS (3)
  1. TREPROSTINIL [Suspect]
     Active Substance: TREPROSTINIL
     Indication: Pulmonary arterial hypertension
     Dosage: UNK, CONT (112 NG/KG/MIN)
     Route: 042
     Dates: start: 20200611
  2. TREPROSTINIL [Suspect]
     Active Substance: TREPROSTINIL
     Dosage: UNK, CONT (112 NG/KG/MIN)
     Route: 042
  3. TREPROSTINIL [Suspect]
     Active Substance: TREPROSTINIL
     Dosage: UNK, CONT (112 NG/KG/MIN)
     Route: 042

REACTIONS (8)
  - Hypoxia [Unknown]
  - Heart rate abnormal [Unknown]
  - Chest pain [Unknown]
  - Dyspnoea [Unknown]
  - Sepsis [Unknown]
  - Catheter site related reaction [Unknown]
  - Expired product administered [Unknown]
  - Intentional product misuse [Unknown]

NARRATIVE: CASE EVENT DATE: 20211222
